FAERS Safety Report 4436366-6 (Version None)
Quarter: 2004Q3

REPORT INFORMATION
  Report Type: 
  Country: None (occurrence: None)
  Receive Date: 20040728
  Receipt Date: 20040122
  Transmission Date: 20050211
  Serious: Yes (Hospitalization)
  Sender: FDA-Public Use
  Company Number: 204315

PATIENT
  Sex: Female

DRUGS (4)
  1. RITUXAN [Suspect]
     Indication: NON-HODGKIN'S LYMPHOMA
     Dosage: 559 MG, Q4W, INTRAVENOUS; 559 MG, INTRAVENOUS
     Route: 042
     Dates: start: 20010823, end: 20010919
  2. RITUXAN [Suspect]
     Indication: NON-HODGKIN'S LYMPHOMA
     Dosage: 559 MG, Q4W, INTRAVENOUS; 559 MG, INTRAVENOUS
     Route: 042
     Dates: start: 20020508
  3. PROLEUKIN [Suspect]
     Indication: NON-HODGKIN'S LYMPHOMA
     Dosage: 6 MIU, QD, SUBCUTANEOUS
     Route: 058
     Dates: start: 20010830, end: 20010926
  4. VITAMIN B12 [Concomitant]

REACTIONS (2)
  - ANAEMIA [None]
  - PNEUMONIA [None]
